FAERS Safety Report 7363869-7 (Version None)
Quarter: 2011Q1

REPORT INFORMATION
  Report Type: 
  Country: None (occurrence: None)
  Receive Date: 20110321
  Receipt Date: 20110314
  Transmission Date: 20110831
  Serious: Yes (Other)
  Sender: FDA-Public Use
  Company Number: TR-PFIZER INC-2011055803

PATIENT
  Age: 50 Year
  Sex: Male

DRUGS (4)
  1. PREDNISOLONE [Suspect]
  2. ASPIRIN [Suspect]
  3. CYCLOPENTOLATE [Suspect]
     Route: 061
  4. ACYCLOVIR [Suspect]

REACTIONS (1)
  - RETINAL VASCULAR DISORDER [None]
